FAERS Safety Report 11659783 (Version 1)
Quarter: 2015Q4

REPORT INFORMATION
  Report Type: Spontaneous
  Country: US (occurrence: US)
  Receive Date: 20151026
  Receipt Date: 20151026
  Transmission Date: 20160304
  Serious: No
  Sender: FDA-Public Use
  Company Number: US-MEDA-2010100035

PATIENT
  Age: 77 Year
  Sex: Female
  Weight: 64 kg

DRUGS (3)
  1. ASTEPRO [Suspect]
     Active Substance: AZELASTINE HYDROCHLORIDE
     Indication: PULMONARY CONGESTION
     Dates: start: 20101019, end: 20101022
  2. MULTI-VITAMINS [Concomitant]
     Route: 048
  3. ANTI-OXIDANT [Concomitant]
     Route: 048

REACTIONS (2)
  - Dysgeusia [Recovered/Resolved]
  - Tongue coated [Recovered/Resolved]

NARRATIVE: CASE EVENT DATE: 20101021
